FAERS Safety Report 11803834 (Version 2)
Quarter: 2015Q4

REPORT INFORMATION
  Report Type: Report from Study
  Country: MX (occurrence: MX)
  Receive Date: 20151204
  Receipt Date: 20151207
  Transmission Date: 20160305
  Serious: Yes (Death, Hospitalization)
  Sender: FDA-Public Use
  Company Number: PHHY2015MX158812

PATIENT
  Age: 79 Year
  Sex: Female

DRUGS (1)
  1. CO-DIOVAN [Suspect]
     Active Substance: HYDROCHLOROTHIAZIDE\VALSARTAN
     Indication: HYPERTENSION
     Dosage: 1 DF (160/12.5 MG), QD
     Route: 065

REACTIONS (2)
  - Renal failure [Unknown]
  - Device related infection [Fatal]

NARRATIVE: CASE EVENT DATE: 20151029
